FAERS Safety Report 4642309-2 (Version None)
Quarter: 2005Q2

REPORT INFORMATION
  Report Type: 
  Country: None (occurrence: None)
  Receive Date: 20050420
  Receipt Date: 20050330
  Transmission Date: 20051028
  Serious: Yes (Hospitalization)
  Sender: FDA-Public Use
  Company Number: 2005042940

PATIENT
  Age: 50 Year
  Sex: Male
  Weight: 53 kg

DRUGS (6)
  1. FLUCONAZOLE [Suspect]
     Indication: ILL-DEFINED DISORDER
     Dosage: (1 IN 1 D), ORAL
     Route: 048
     Dates: start: 20050131, end: 20050202
  2. LERCANIDIPINE [Suspect]
     Indication: ILL-DEFINED DISORDER
     Dosage: (1 IN 1 D), ORAL
     Route: 048
     Dates: end: 20050208
  3. INDINAVIR SULFATE (INDIVANIR SULFATE) [Suspect]
     Indication: ILL-DEFINED DISORDER
     Dosage: (400 MG, 6 IN 1 D), ORAL
     Route: 048
     Dates: start: 19950101
  4. LAMIVUDINE (LAMIVUDINE) [Concomitant]
  5. ABACAVIR SULFATE (ABACAVIR SULFATE) [Concomitant]
  6. FACTOR VIII (ANTIHAEMOPHILIC FACTOR) (FACTOR VIII (ANTIHAEMOPHILIC FAC [Concomitant]

REACTIONS (5)
  - ALANINE AMINOTRANSFERASE INCREASED [None]
  - ASPARTATE AMINOTRANSFERASE INCREASED [None]
  - BLOOD ALKALINE PHOSPHATASE INCREASED [None]
  - BLOOD GLUCOSE INCREASED [None]
  - GAMMA-GLUTAMYLTRANSFERASE INCREASED [None]
